FAERS Safety Report 5107244-4 (Version None)
Quarter: 2006Q3

REPORT INFORMATION
  Report Type: 
  Country: None (occurrence: None)
  Receive Date: 20060913
  Receipt Date: 20060828
  Transmission Date: 20061208
  Serious: Yes (Disabling)
  Sender: FDA-Public Use
  Company Number: TRP_0862_2006

PATIENT
  Age: 58 Year
  Sex: Male

DRUGS (9)
  1. RIBASPHERE [Suspect]
     Indication: HEPATITIS C
     Dosage: 60 MG QDAY PO
     Route: 048
     Dates: start: 20060302, end: 20060808
  2. INFERGEN [Suspect]
     Indication: HEPATITIS C
     Dosage: 6 MCG QDAY SC
     Route: 058
     Dates: start: 20060302, end: 20060808
  3. VITAMIN B COMPLEX CAP [Concomitant]
  4. PROPAFENONE HCL [Concomitant]
  5. BISOPROLOL FUMARATE [Concomitant]
  6. WARFARIN SODIUM [Concomitant]
  7. TRANXENE [Concomitant]
  8. WELLBUTRIN [Concomitant]
  9. DIGOXIN [Concomitant]

REACTIONS (11)
  - ACTIVITIES OF DAILY LIVING IMPAIRED [None]
  - AGNOSIA [None]
  - ANOREXIA [None]
  - ASTHENIA [None]
  - BALANCE DISORDER [None]
  - BLOOD THYROID STIMULATING HORMONE INCREASED [None]
  - DISORIENTATION [None]
  - FATIGUE [None]
  - LOSS OF PROPRIOCEPTION [None]
  - NERVOUS SYSTEM DISORDER [None]
  - PLATELET COUNT DECREASED [None]
